FAERS Safety Report 5448308-5 (Version None)
Quarter: 2007Q3

REPORT INFORMATION
  Report Type: 
  Country: None (occurrence: None)
  Receive Date: 20070906
  Receipt Date: 20070824
  Transmission Date: 20080115
  Serious: Yes (Life-Threatening)
  Sender: FDA-Public Use
  Company Number: 0708-689

PATIENT
  Age: 1 Day
  Sex: Female

DRUGS (1)
  1. CUROSURF [Suspect]
     Indication: RESPIRATORY DISTRESS
     Dosage: 240 MG, ENDOTRACHEAL
     Route: 007
     Dates: start: 20070726

REACTIONS (4)
  - DISSEMINATED INTRAVASCULAR COAGULATION [None]
  - NEONATAL HYPOTENSION [None]
  - SEPSIS NEONATAL [None]
  - THROMBOCYTOPENIA [None]
